FAERS Safety Report 22936449 (Version 5)
Quarter: 2024Q1

REPORT INFORMATION
  Report Type: Spontaneous
  Country: US (occurrence: US)
  Receive Date: 20230912
  Receipt Date: 20240226
  Transmission Date: 20240410
  Serious: No
  Sender: FDA-Public Use
  Company Number: US-SA-SAC20230906001114

PATIENT
  Sex: Female

DRUGS (1)
  1. FABRAZYME [Suspect]
     Active Substance: AGALSIDASE BETA
     Indication: Fabry^s disease
     Dosage: 1 MG/KG, QOW IN 250ML NORMAL SALINE (STRENGTH 5 MG AND 35 MG)
     Route: 042
     Dates: start: 20201027

REACTIONS (1)
  - Maternal exposure during pregnancy [Unknown]
